FAERS Safety Report 4714112-6 (Version None)
Quarter: 2005Q3

REPORT INFORMATION
  Report Type: 
  Country: None (occurrence: None)
  Receive Date: 20050713
  Receipt Date: 20050629
  Transmission Date: 20060218
  Serious: Yes (Other)
  Sender: FDA-Public Use
  Company Number: 05-06-1167

PATIENT
  Age: 53 Year
  Sex: Male

DRUGS (2)
  1. CYCLOSPORINE [Suspect]
     Indication: BEHCET'S SYNDROME
     Dosage: ORAL
     Route: 048
  2. CYCLOSPORINE [Suspect]
     Indication: EYE DISORDER
     Dosage: ORAL
     Route: 048

REACTIONS (15)
  - ANAEMIA [None]
  - APHTHOUS STOMATITIS [None]
  - BEHCET'S SYNDROME [None]
  - DISEASE RECURRENCE [None]
  - DRUG LEVEL FLUCTUATING [None]
  - DYSARTHRIA [None]
  - DYSPHAGIA [None]
  - HEADACHE [None]
  - LEUKOCYTOSIS [None]
  - NAUSEA [None]
  - PLEOCYTOSIS [None]
  - PROTEIN TOTAL INCREASED [None]
  - RED BLOOD CELL SEDIMENTATION RATE INCREASED [None]
  - REFLEXES ABNORMAL [None]
  - UVEITIS [None]
